APPROVED DRUG PRODUCT: ECONAZOLE NITRATE
Active Ingredient: ECONAZOLE NITRATE
Strength: 1%
Dosage Form/Route: CREAM;TOPICAL
Application: A210364 | Product #001
Applicant: AUROBINDO PHARMA USA INC
Approved: Apr 18, 2018 | RLD: No | RS: No | Type: DISCN